FAERS Safety Report 11529140 (Version 2)
Quarter: 2015Q4

REPORT INFORMATION
  Report Type: Spontaneous
  Country: US (occurrence: US)
  Receive Date: 20150921
  Receipt Date: 20151001
  Transmission Date: 20160304
  Serious: No
  Sender: FDA-Public Use
  Company Number: US-VERTEX PHARMACEUTICALS-2015-003783

PATIENT
  Sex: Female
  Weight: 50 kg

DRUGS (13)
  1. TOBI [Concomitant]
     Active Substance: TOBRAMYCIN
     Dosage: EVERY OTHER MONTH
  2. CREON [Concomitant]
     Active Substance: PANCRELIPASE AMYLASE\PANCRELIPASE LIPASE\PANCRELIPASE PROTEASE
  3. AZITHROMYCIN [Concomitant]
     Active Substance: AZITHROMYCIN ANHYDROUS
  4. OMEPRAZOLE. [Concomitant]
     Active Substance: OMEPRAZOLE
  5. URSODIOL. [Concomitant]
     Active Substance: URSODIOL
  6. VITAMIN D [Concomitant]
     Active Substance: CHOLECALCIFEROL
  7. PULMOZYME [Concomitant]
     Active Substance: DORNASE ALFA
  8. LACTOBACILLUS [Concomitant]
     Active Substance: LACTOBACILLUS ACIDOPHILUS
  9. ORKAMBI [Suspect]
     Active Substance: IVACAFTOR\LUMACAFTOR
     Indication: CYSTIC FIBROSIS
     Dosage: 2 DF, BID
     Route: 048
     Dates: start: 20150902
  10. ALBUTEROL. [Concomitant]
     Active Substance: ALBUTEROL
     Dosage: 3 PUFFS, UNK
     Route: 055
  11. MEPHYTON [Concomitant]
     Active Substance: PHYTONADIONE
  12. SODIUM CHLORIDE. [Concomitant]
     Active Substance: SODIUM CHLORIDE
  13. MULTIVITAMIN [Concomitant]
     Active Substance: VITAMINS

REACTIONS (3)
  - Abdominal discomfort [Recovered/Resolved]
  - Diarrhoea [Recovered/Resolved]
  - Flatulence [Recovered/Resolved]
